FAERS Safety Report 8311357-3 (Version None)
Quarter: 2012Q2

REPORT INFORMATION
  Report Type: 
  Country: None (occurrence: None)
  Receive Date: 20120423
  Receipt Date: 20120412
  Transmission Date: 20120825
  Serious: Yes (Other)
  Sender: FDA-Public Use
  Company Number: AUR-APL-2012-01328

PATIENT
  Age: 67 Year
  Sex: Female
  Weight: 82.09 kg

DRUGS (7)
  1. CALCIUM [Concomitant]
  2. METOPROLOL TARTRATE [Suspect]
     Indication: PRODUCT USED FOR UNKNOWN INDICATION
  3. LIPITOR [Suspect]
     Indication: CARDIAC DISORDER
     Dosage: 30 MG (60 MG, 1 IN 2 D), 60 AND 40 MG DAILY ON ALTERNATE DAYS (40 MG, 1 IN 2 D)
  4. LIPITOR [Suspect]
     Indication: BLOOD CHOLESTEROL ABNORMAL
     Dosage: 30 MG (60 MG, 1 IN 2 D), 60 AND 40 MG DAILY ON ALTERNATE DAYS (40 MG, 1 IN 2 D)
  5. LEVOTHYROXINE SODIUM [Concomitant]
  6. VITAMIN D [Concomitant]
  7. ASPIRIN [Concomitant]

REACTIONS (2)
  - MEMORY IMPAIRMENT [None]
  - POLLAKIURIA [None]
